FAERS Safety Report 5163134-2 (Version None)
Quarter: 2006Q4

REPORT INFORMATION
  Report Type: 
  Country: None (occurrence: None)
  Receive Date: 20061204
  Receipt Date: 20061121
  Transmission Date: 20070319
  Serious: Yes (Hospitalization)
  Sender: FDA-Public Use
  Company Number: US-JNJFOC-20061005659

PATIENT
  Age: 68 Year
  Sex: Female

DRUGS (14)
  1. DOXIL [Suspect]
     Route: 042
  2. DOXIL [Suspect]
     Indication: BREAST CANCER METASTATIC
     Route: 042
  3. GEMCITABINE [Suspect]
     Route: 042
  4. GEMCITABINE [Suspect]
     Indication: BREAST CANCER METASTATIC
     Route: 042
  5. HERCEPTIN [Suspect]
     Route: 042
  6. HERCEPTIN [Suspect]
     Indication: BREAST CANCER METASTATIC
     Route: 042
  7. ACETAMINOPHEN [Concomitant]
     Indication: DRUG USE FOR UNKNOWN INDICATION
     Route: 048
  8. AMITRIPTYLINE HCL [Concomitant]
     Indication: DRUG USE FOR UNKNOWN INDICATION
     Route: 048
  9. ATORVASTATIN CALCIUM [Concomitant]
     Indication: DRUG USE FOR UNKNOWN INDICATION
     Route: 048
  10. DOCUSATE [Concomitant]
     Indication: DRUG USE FOR UNKNOWN INDICATION
     Route: 048
  11. GLYBURIDE [Concomitant]
     Indication: DRUG USE FOR UNKNOWN INDICATION
  12. HYDROCHLOROTHIAZIDE [Concomitant]
     Indication: DRUG USE FOR UNKNOWN INDICATION
     Route: 048
  13. LISPRO [Concomitant]
     Indication: DRUG USE FOR UNKNOWN INDICATION
     Route: 058
  14. TRIAMTERENE [Concomitant]
     Indication: DRUG USE FOR UNKNOWN INDICATION
     Route: 048

REACTIONS (1)
  - OSTEOMYELITIS [None]
